FAERS Safety Report 5010294-X (Version None)
Quarter: 2006Q2

REPORT INFORMATION
  Report Type: 
  Country: None (occurrence: None)
  Receive Date: 20060404
  Receipt Date: 20060113
  Transmission Date: 20061013
  Serious: Yes (Hospitalization)
  Sender: FDA-Public Use
  Company Number: US200601002387

PATIENT
  Sex: Female

DRUGS (3)
  1. CYMBALTA [Suspect]
     Indication: DEPRESSION SUICIDAL
     Dosage: 30 MG, 2/D,
     Dates: end: 20060110
  2. ABILIFY [Concomitant]
  3. GEODON [Concomitant]

REACTIONS (6)
  - ABNORMAL SENSATION IN EYE [None]
  - DIZZINESS [None]
  - EYE DISORDER [None]
  - MENTAL IMPAIRMENT [None]
  - SUICIDAL IDEATION [None]
  - VISUAL DISTURBANCE [None]
